FAERS Safety Report 8898026 (Version 1)
Quarter: 2012Q4

REPORT INFORMATION
  Report Type: 
  Country: US (occurrence: US)
  Receive Date: 20121108
  Receipt Date: 20121108
  Transmission Date: 20130627
  Serious: No
  Sender: FDA-Public Use
  Company Number: US-AMGEN-USASP2012030707

PATIENT
  Age: 73 Year
  Sex: Female
  Weight: 90.7 kg

DRUGS (7)
  1. ENBREL [Suspect]
     Indication: PRODUCT USED FOR UNKNOWN INDICATION
     Dosage: 25 mg, 2 times/wk
     Route: 058
  2. LANTUS [Concomitant]
  3. METFORMIN [Concomitant]
     Dosage: 500 mg, UNK
  4. DIOVAN [Concomitant]
     Dosage: 40 mg, UNK
  5. COSOPT [Concomitant]
  6. XALATAN [Concomitant]
  7. ALPHAGAN P [Concomitant]

REACTIONS (1)
  - Pneumonia [Unknown]
